FAERS Safety Report 12811431 (Version 1)
Quarter: 2016Q4

REPORT INFORMATION
  Report Type: Spontaneous
  Country: US (occurrence: US)
  Receive Date: 20161005
  Receipt Date: 20161005
  Transmission Date: 20170207
  Serious: Yes (Other)
  Sender: FDA-Public Use
  Company Number: US-PFIZER INC-2016430289

PATIENT
  Age: 58 Year
  Sex: Female

DRUGS (1)
  1. CHANTIX [Suspect]
     Active Substance: VARENICLINE TARTRATE
     Indication: SMOKING CESSATION THERAPY
     Dosage: UNK, DAILY, ^10 MG DAILY^
     Dates: start: 2000

REACTIONS (3)
  - Tremor [Unknown]
  - Feeling jittery [Unknown]
  - Hallucination [Unknown]
